FAERS Safety Report 21344064 (Version 1)
Quarter: 2022Q3

REPORT INFORMATION
  Report Type: Spontaneous
  Country: US (occurrence: US)
  Receive Date: 20220916
  Receipt Date: 20220916
  Transmission Date: 20221026
  Serious: No
  Sender: FDA-Public Use
  Company Number: US-REGENERON PHARMACEUTICALS, INC.-2021-78185

PATIENT
  Age: 50 Year
  Sex: Female

DRUGS (1)
  1. PRALUENT [Suspect]
     Active Substance: ALIROCUMAB
     Indication: Hypercholesterolaemia
     Dosage: 75 MG, Q2W
     Route: 058
     Dates: start: 2020

REACTIONS (4)
  - Injection site haemorrhage [Unknown]
  - Injection site bruising [Unknown]
  - Injection site discolouration [Unknown]
  - Injection site scab [Unknown]

NARRATIVE: CASE EVENT DATE: 20210817
